FAERS Safety Report 11772123 (Version 1)
Quarter: 2015Q4

REPORT INFORMATION
  Report Type: Spontaneous
  Country: US (occurrence: US)
  Receive Date: 20151124
  Receipt Date: 20151124
  Transmission Date: 20160304
  Serious: Yes (Hospitalization, Other)
  Sender: FDA-Public Use
  Company Number: US-MYLANLABS-2015M1041135

PATIENT

DRUGS (1)
  1. AMITRIPTYLINE [Suspect]
     Active Substance: AMITRIPTYLINE
     Indication: OVERDOSE
     Route: 048

REACTIONS (8)
  - Overdose [Recovered/Resolved]
  - Tachycardia [Recovered/Resolved]
  - Hypertension [Recovered/Resolved]
  - Mydriasis [Recovered/Resolved]
  - Metabolic acidosis [Recovered/Resolved]
  - Coma [Recovered/Resolved]
  - Unresponsive to stimuli [Recovered/Resolved]
  - Respiratory acidosis [Recovered/Resolved]
